FAERS Safety Report 6258357-5 (Version None)
Quarter: 2009Q3

REPORT INFORMATION
  Report Type: 
  Country: None (occurrence: None)
  Receive Date: 20090701
  Receipt Date: 20080714
  Transmission Date: 20100115
  Serious: Yes (Other)
  Sender: FDA-Public Use
  Company Number: 575591

PATIENT
  Age: 66 Year
  Sex: Female

DRUGS (3)
  1. KLONOPIN [Suspect]
     Indication: ESSENTIAL TREMOR
     Dosage: 0.5 MG 1 PER 1 DAY
  2. ALCOHOL (ALCOHOL) [Suspect]
     Indication: DRUG USE FOR UNKNOWN INDICATION
  3. SYNTHROID (LEVOTHYROXINE) UNK [Concomitant]

REACTIONS (1)
  - ROAD TRAFFIC ACCIDENT [None]
